FAERS Safety Report 8227063-X (Version None)
Quarter: 2012Q1

REPORT INFORMATION
  Report Type: 
  Country: None (occurrence: None)
  Receive Date: 20120322
  Receipt Date: 20120320
  Transmission Date: 20120608
  Serious: No
  Sender: FDA-Public Use
  Company Number: US-PFIZER INC-2012072699

PATIENT
  Sex: Male
  Weight: 131.52 kg

DRUGS (10)
  1. PACERONE [Concomitant]
     Dosage: 200 MG, 1X/DAY
  2. LEVOTHYROXINE [Concomitant]
     Dosage: UNK, 1X/DAY
  3. AMLODIPINE [Concomitant]
     Dosage: 10 MG, 1X/DAY
  4. WARFARIN [Concomitant]
     Dosage: 7.5 MG, 1X/DAY
  5. CITALOPRAM [Concomitant]
     Dosage: 20 MG, 1X/DAY
  6. SPIRIVA [Concomitant]
     Dosage: UNK, 1X/DAY
  7. CHANTIX [Suspect]
     Indication: SMOKING CESSATION THERAPY
     Dosage: 0.5 MG, 1X/DAY
     Route: 048
     Dates: start: 20110101, end: 20110101
  8. IMODIUM [Concomitant]
     Dosage: UNK, 1X/DAY
  9. DEXTROAMPHETAMINE [Concomitant]
     Dosage: UNK, 3X/DAY
  10. CHANTIX [Suspect]
     Dosage: 1 MG, 2X/DAY
     Route: 048
     Dates: start: 20110101, end: 20110101

REACTIONS (2)
  - INSOMNIA [None]
  - ABNORMAL DREAMS [None]
